FAERS Safety Report 23439705 (Version 1)
Quarter: 2024Q1

REPORT INFORMATION
  Report Type: Spontaneous
  Country: US (occurrence: None)
  Receive Date: 20240123
  Receipt Date: 20240123
  Transmission Date: 20240410
  Serious: Yes (Hospitalization)
  Sender: FDA-Public Use
  Company Number: None

PATIENT
  Sex: Male

DRUGS (3)
  1. RINVOQ [Suspect]
     Active Substance: UPADACITINIB
  2. GABAPENTIN [Suspect]
     Active Substance: GABAPENTIN
  3. ALLOPURINOL [Suspect]
     Active Substance: ALLOPURINOL

REACTIONS (8)
  - Influenza [None]
  - Therapy interrupted [None]
  - Dyspnoea [None]
  - Cough [None]
  - Pain in extremity [None]
  - Paraesthesia oral [None]
  - Paraesthesia oral [None]
  - Nonspecific reaction [None]
